FAERS Safety Report 10090246 (Version 1)
Quarter: 2014Q2

REPORT INFORMATION
  Report Type: Spontaneous
  Country: US (occurrence: None)
  Receive Date: 20140411
  Receipt Date: 20140411
  Transmission Date: 20141212
  Serious: No
  Sender: FDA-Public Use
  Company Number: 2014US003041

PATIENT
  Age: 42 Year
  Sex: Male
  Weight: 89 kg

DRUGS (3)
  1. ICLUSIG (PONATINIB) TABLET, 45MG [Suspect]
     Indication: CHRONIC MYELOID LEUKAEMIA
     Route: 048
     Dates: start: 20130523, end: 20131217
  2. ASPIRIN (ACETYLSALICYLIC ACID) [Concomitant]
  3. TRIAMCINOLONE (TRIAMCINOLONE ACETONIDE) [Concomitant]

REACTIONS (3)
  - Folliculitis [None]
  - Keratosis pilaris [None]
  - Xerosis [None]
